FAERS Safety Report 6211088-X (Version None)
Quarter: 2009Q2

REPORT INFORMATION
  Report Type: 
  Country: None (occurrence: None)
  Receive Date: 20090602
  Receipt Date: 20080709
  Transmission Date: 20091009
  Serious: Yes (Hospitalization, Other)
  Sender: FDA-Public Use
  Company Number: US-ASTRAZENECA-2006UW10856

PATIENT
  Age: 20862 Day
  Sex: Female
  Weight: 103.9 kg

DRUGS (24)
  1. SEROQUEL [Suspect]
     Indication: ANXIETY
     Dosage: 800MG, 600MG
     Route: 048
  2. SEROQUEL [Suspect]
     Indication: DEPRESSION
     Dosage: 800MG, 600MG
     Route: 048
  3. SEROQUEL [Suspect]
     Indication: SCHIZOPHRENIA
     Dosage: 800MG, 600MG
     Route: 048
  4. SEROQUEL [Suspect]
     Indication: MOOD SWINGS
     Dosage: 800MG, 600MG
     Route: 048
  5. SEROQUEL [Suspect]
     Dosage: 25MG TO 800MG
     Route: 048
     Dates: start: 20020710
  6. SEROQUEL [Suspect]
     Dosage: 25MG TO 800MG
     Route: 048
     Dates: start: 20020710
  7. SEROQUEL [Suspect]
     Dosage: 25MG TO 800MG
     Route: 048
     Dates: start: 20020710
  8. SEROQUEL [Suspect]
     Dosage: 25MG TO 800MG
     Route: 048
     Dates: start: 20020710
  9. LASIX [Concomitant]
     Indication: DIURETIC THERAPY
     Dosage: 20 MG-40 MG DAILY
     Route: 048
  10. WELLBUTRIN SR [Concomitant]
     Route: 048
  11. PROZAC [Concomitant]
     Dosage: 20MG TAB Q DAY FOR 1 MONTH THEN 2 TABS(40MG) Q DAY FOR 2 WEEKS, THEN 3 TABS(60MG) Q DAY THEREAFTER
     Route: 048
  12. HUMULIN INSULIN [Concomitant]
     Dosage: STRENGTH 70/30. 10-70 UNITS TWICE A DAY FLUCTUATING
     Route: 065
  13. PREDNISONE [Concomitant]
     Dosage: 5MG DAILY, INCREASED TO 20 MG TWICE A DAY AND AGAIN DECREASED TO 5 MG DAILY (TAPERING)
     Route: 048
  14. NITROGLYCERIN [Concomitant]
     Dosage: 0.4 MG PRN UPTO 3 TIMES IF NEEDED
  15. PREMARIN [Concomitant]
     Dosage: STRENGTH 0.625 MG- 1.25 MG. DOSE 0.9 MG-1.25 MG DAILY
     Route: 048
  16. CRESTOR [Concomitant]
     Route: 048
  17. DARVOCET-N 100 [Concomitant]
     Dosage: 1-2 TAB PRN
     Route: 048
  18. NORTRIPTYLINE HCL [Concomitant]
     Indication: PAIN
     Route: 048
  19. LYRICA [Concomitant]
     Indication: PARAESTHESIA
     Dosage: 75 MG-100 MG TWICE A DAY
     Route: 048
  20. VALIUM [Concomitant]
     Indication: MUSCLE SPASMS
     Route: 048
  21. XANAX [Concomitant]
     Indication: ANXIETY
     Dosage: 1 MG-5 MG DAILY
     Route: 048
  22. XANAX [Concomitant]
     Indication: PANIC ATTACK
     Dosage: 1 MG-5 MG DAILY
     Route: 048
  23. GLIPIZIDE [Concomitant]
     Dosage: 5 MG-10 MG TWICE A DAY
     Route: 048
  24. JANUVIA [Concomitant]
     Route: 048

REACTIONS (3)
  - DIABETES MELLITUS [None]
  - DIABETIC RETINOPATHY [None]
  - HYPOGLYCAEMIA [None]
